FAERS Safety Report 8557039-4 (Version None)
Quarter: 2012Q3

REPORT INFORMATION
  Report Type: 
  Country: None (occurrence: None)
  Receive Date: 20120801
  Receipt Date: 20120724
  Transmission Date: 20120928
  Serious: No
  Sender: FDA-Public Use
  Company Number: US-B.I. PHARMACEUTICALS,INC./RIDGEFIELD-2012-BP-16476BP

PATIENT
  Sex: Female

DRUGS (10)
  1. ALBUTEROL [Concomitant]
     Indication: CHRONIC OBSTRUCTIVE PULMONARY DISEASE
  2. HYDROXYZINE [Concomitant]
  3. PROAIR HFA [Concomitant]
     Indication: CHRONIC OBSTRUCTIVE PULMONARY DISEASE
  4. PROZAC [Concomitant]
  5. RANITIDINE [Concomitant]
  6. SPIRIVA [Suspect]
     Route: 048
     Dates: start: 20120724, end: 20120724
  7. AMLODIPINE [Concomitant]
  8. SIMVASTATIN [Concomitant]
  9. TRAZODONE HCL [Concomitant]
  10. SPIRIVA [Suspect]
     Indication: CHRONIC OBSTRUCTIVE PULMONARY DISEASE
     Dosage: 18 MCG
     Route: 055
     Dates: start: 20120201

REACTIONS (1)
  - INCORRECT ROUTE OF DRUG ADMINISTRATION [None]
